FAERS Safety Report 10388976 (Version 1)
Quarter: 2014Q1

REPORT INFORMATION
  Report Type: Spontaneous
  Country: US (occurrence: None)
  Receive Date: 20140306
  Receipt Date: 20140306
  Transmission Date: 20141002
  Serious: Yes (Other)
  Sender: FDA-Public Use
  Company Number: 163-21880-13112028

PATIENT
  Age: 66 Year
  Sex: Male

DRUGS (11)
  1. REVLIMID (LENALIDOMIDE) (25 MILLIGRAM, CAPSULES) [Suspect]
     Indication: PLASMA CELL MYELOMA
     Dosage: 25 MG, 14 IN 14 D, PO
     Route: 048
     Dates: start: 20130524
  2. HUMALOG MIX (INSULIN LISPRO) [Concomitant]
  3. ZOCOR (SIMVASTATIN) (TABLETS) [Concomitant]
  4. COZAAR (LOSARTAN POTASSIUM) (TABLETS) [Concomitant]
  5. COREG (CARVEDILOL) (TABLETS) [Concomitant]
  6. AMLODIPINE BESYLATE (AMLODIPINE BESILATE) [Concomitant]
  7. DEXAMETHASONE (DEXAMETHASONE) [Concomitant]
  8. ISOSORBIDE MONONITRATE (ISOSORBIDE MONONITRATE) [Concomitant]
  9. ASPIRINE (ACETYLSALICYLIC ACID) (CHEWABLE TABLET) [Concomitant]
  10. ALLOPURINOL (ALLOPURINOL) [Concomitant]
  11. WARFARIN SODIUM (WARFARIN SODIUM) [Concomitant]

REACTIONS (1)
  - Atrial fibrillation [None]
